FAERS Safety Report 4975063-5 (Version None)
Quarter: 2006Q2

REPORT INFORMATION
  Report Type: 
  Country: None (occurrence: None)
  Receive Date: 20060411
  Receipt Date: 20060323
  Transmission Date: 20061013
  Serious: Yes (Other)
  Sender: FDA-Public Use
  Company Number: 2006-00211

PATIENT
  Sex: Male

DRUGS (1)
  1. VELCADE [Suspect]
     Indication: NEOPLASM

REACTIONS (1)
  - NEOPLASM PROGRESSION [None]
